FAERS Safety Report 5193601-7 (Version None)
Quarter: 2006Q4

REPORT INFORMATION
  Report Type: 
  Country: None (occurrence: None)
  Receive Date: 20061228
  Receipt Date: 20061009
  Transmission Date: 20070319
  Serious: No
  Sender: FDA-Public Use
  Company Number: US-GLAXOSMITHKLINE-A0622942A

PATIENT
  Age: 62 Year
  Sex: Male

DRUGS (4)
  1. FLONASE [Suspect]
     Route: 045
  2. LIPITOR [Concomitant]
  3. LOTENSIN [Concomitant]
  4. ZETIA [Concomitant]

REACTIONS (1)
  - MIGRAINE WITH AURA [None]
